FAERS Safety Report 9002728 (Version 3)
Quarter: 2014Q1

REPORT INFORMATION
  Report Type: Spontaneous
  Country: US (occurrence: US)
  Receive Date: 20130107
  Receipt Date: 20140107
  Transmission Date: 20141002
  Serious: No
  Sender: FDA-Public Use
  Company Number: US-GLAXOSMITHKLINE-A0995842A

PATIENT
  Age: 56 Year
  Sex: Female
  Weight: 84.44 kg

DRUGS (6)
  1. BENLYSTA [Suspect]
     Indication: SYSTEMIC LUPUS ERYTHEMATOSUS
     Dosage: 120MG CYCLIC
     Route: 042
     Dates: start: 20120701
  2. PREDNISONE [Concomitant]
     Dosage: 5MG PER DAY
  3. HYDROXYCHLOROQUINE [Concomitant]
     Dosage: 200MG PER DAY
  4. CITALOPRAM [Concomitant]
     Dosage: 5MG PER DAY
  5. NEXIUM [Concomitant]
     Dosage: 40MG PER DAY
  6. FLUTICASONE [Concomitant]

REACTIONS (8)
  - Paraesthesia [Not Recovered/Not Resolved]
  - Sensory disturbance [Not Recovered/Not Resolved]
  - Neuralgia [Not Recovered/Not Resolved]
  - Anxiety [Not Recovered/Not Resolved]
  - Rash [Not Recovered/Not Resolved]
  - Back pain [Unknown]
  - Pain in extremity [Unknown]
  - Arthritis [Unknown]
